FAERS Safety Report 21789650 (Version 1)
Quarter: 2022Q4

REPORT INFORMATION
  Report Type: Report from Study
  Country: US (occurrence: US)
  Receive Date: 20221228
  Receipt Date: 20221228
  Transmission Date: 20230113
  Serious: No
  Sender: FDA-Public Use
  Company Number: US-ABBVIE-4216897

PATIENT
  Sex: Female

DRUGS (1)
  1. HUMIRA [Suspect]
     Active Substance: ADALIMUMAB
     Indication: Colitis ulcerative
     Dosage: CF
     Route: 058

REACTIONS (6)
  - Anxiety [Unknown]
  - Night sweats [Unknown]
  - Abdominal discomfort [Unknown]
  - Diarrhoea [Unknown]
  - Facial pain [Unknown]
  - Nasopharyngitis [Unknown]
